FAERS Safety Report 10870145 (Version 2)
Quarter: 2015Q2

REPORT INFORMATION
  Report Type: Spontaneous
  Country: US (occurrence: US)
  Receive Date: 20150226
  Receipt Date: 20150410
  Transmission Date: 20150821
  Serious: Yes (Life-Threatening, Hospitalization)
  Sender: FDA-Public Use
  Company Number: US-BAYER-2015-027082

PATIENT
  Age: 22 Year
  Sex: Female
  Weight: 56.69 kg

DRUGS (5)
  1. MIRENA [Suspect]
     Active Substance: LEVONORGESTREL
     Indication: CONTRACEPTION
     Dosage: 20 MCG/24HR, CONT
     Route: 015
     Dates: start: 20040521, end: 20130215
  2. LEXAPRO [Concomitant]
     Active Substance: ESCITALOPRAM OXALATE
  3. NORFLEX [Concomitant]
     Active Substance: ORPHENADRINE CITRATE
  4. LORTAB [Concomitant]
     Active Substance: ACETAMINOPHEN\HYDROCODONE BITARTRATE
  5. CELEXA [Concomitant]
     Active Substance: CITALOPRAM HYDROBROMIDE

REACTIONS (20)
  - Injury [None]
  - General physical health deterioration [None]
  - Menstrual disorder [None]
  - Infection [None]
  - Emotional distress [None]
  - Scar [None]
  - Depression [None]
  - Device misuse [None]
  - Anhedonia [None]
  - Pelvic pain [None]
  - Nervousness [None]
  - Anxiety [None]
  - Menorrhagia [None]
  - Device issue [None]
  - Sexual dysfunction [None]
  - Uterine perforation [None]
  - Abdominal pain lower [None]
  - Abdominal pain [None]
  - Back pain [None]
  - Painful defaecation [None]

NARRATIVE: CASE EVENT DATE: 200508
